FAERS Safety Report 15644017 (Version 2)
Quarter: 2018Q4

REPORT INFORMATION
  Report Type: Spontaneous
  Country: FI (occurrence: FI)
  Receive Date: 20181121
  Receipt Date: 20181203
  Transmission Date: 20190205
  Serious: Yes (Other)
  Sender: FDA-Public Use
  Company Number: FI-PFIZER INC-2018473620

PATIENT
  Age: 32 Year
  Sex: Female

DRUGS (11)
  1. BETOLVEX [Concomitant]
     Active Substance: CYANOCOBALAMIN
     Dosage: 1 MG, ONCE DAILY
     Route: 048
  2. DEVISOL NEUTRAL [Concomitant]
     Dosage: 20 UG, DAILY
     Route: 048
  3. BUVENTOL EASYHALER [Concomitant]
     Active Substance: ALBUTEROL SULFATE
     Dosage: 1 DF, AS NEEDED (MAXIMUM OF 8 DOSES/DAY)
     Route: 055
  4. DIUREX [Concomitant]
     Active Substance: AMILORIDE HYDROCHLORIDE\HYDROCHLOROTHIAZIDE
     Dosage: 1 DF, ONCE DAILY (STRENGTH 5/50MG
     Route: 048
  5. XELJANZ [Suspect]
     Active Substance: TOFACITINIB CITRATE
     Indication: PSORIATIC ARTHROPATHY
     Dosage: 5 MG, TWICE DAILY
     Dates: start: 20181007, end: 201810
  6. KALEORID [Concomitant]
     Active Substance: POTASSIUM CHLORIDE
     Dosage: 1 G, ONCE DAILY
     Route: 048
  7. HISTEC [Concomitant]
     Active Substance: CETIRIZINE HYDROCHLORIDE
     Dosage: 10 MG, AS NEEDED
     Route: 048
  8. SYMBICORT [Concomitant]
     Active Substance: BUDESONIDE\FORMOTEROL FUMARATE DIHYDRATE
     Dosage: 2 DF, AS NEEDED (MAXIMUM OF 2 DOSES PER DAY)
     Route: 055
  9. PANADOL NOVUM [Concomitant]
     Dosage: 1000 MG, AS NEEDED (MAXIMUM OF 3000 MG/DAY)
     Route: 048
  10. CYPRETYL [Concomitant]
     Dosage: 1 DF, ONCE DAILY STRENGTH 2000/35UG
     Route: 048
  11. CALCICHEW APPELSIINI [Concomitant]
     Dosage: 500 MG, ONCE DAILY
     Route: 048

REACTIONS (2)
  - Nausea [Recovering/Resolving]
  - Dizziness [Recovering/Resolving]

NARRATIVE: CASE EVENT DATE: 20181015
